FAERS Safety Report 5803252-6 (Version None)
Quarter: 2008Q3

REPORT INFORMATION
  Report Type: 
  Country: None (occurrence: None)
  Receive Date: 20080701
  Receipt Date: 20071217
  Transmission Date: 20090109
  Serious: Yes (Hospitalization)
  Sender: FDA-Public Use
  Company Number: US200712003407

PATIENT
  Sex: Male

DRUGS (4)
  1. HUMALOG [Suspect]
     Dates: start: 20061126
  2. LISINOPRIL [Concomitant]
  3. LYRICA [Concomitant]
  4. TRICOR 9FENOFIBRATE) [Concomitant]

REACTIONS (2)
  - BLOOD GLUCOSE INCREASED [None]
  - DRUG INEFFECTIVE [None]
